FAERS Safety Report 5213167-2 (Version None)
Quarter: 2007Q1

REPORT INFORMATION
  Report Type: 
  Country: None (occurrence: None)
  Receive Date: 20070119
  Receipt Date: 20070116
  Transmission Date: 20070707
  Serious: Yes (Other)
  Sender: FDA-Public Use
  Company Number: US-GLAXOSMITHKLINE-A0635869A

PATIENT
  Sex: Female

DRUGS (4)
  1. LAMICTAL [Suspect]
     Dosage: 800 PER DAY
     Route: 048
  2. DILANTIN [Concomitant]
  3. VALIUM [Concomitant]
  4. KLONOPIN [Concomitant]

REACTIONS (3)
  - AGGRESSION [None]
  - ANGER [None]
  - DEPRESSION [None]
